FAERS Safety Report 23076640 (Version 1)
Quarter: 2023Q4

REPORT INFORMATION
  Report Type: Report from Study
  Country: US (occurrence: US)
  Receive Date: 20231017
  Receipt Date: 20231017
  Transmission Date: 20240110
  Serious: Yes (Other)
  Sender: FDA-Public Use
  Company Number: US-ABBVIE-5452639

PATIENT
  Age: 82 Year
  Sex: Female

DRUGS (1)
  1. RESTASIS [Suspect]
     Active Substance: CYCLOSPORINE
     Indication: Product used for unknown indication
     Dosage: 1 DROP FOR BOTH EYES
     Route: 047
     Dates: start: 20220510

REACTIONS (2)
  - Surgery [Unknown]
  - Malaise [Unknown]

NARRATIVE: CASE EVENT DATE: 20231001
